FAERS Safety Report 11772537 (Version 5)
Quarter: 2018Q2

REPORT INFORMATION
  Report Type: Spontaneous
  Country: US (occurrence: US)
  Receive Date: 20151124
  Receipt Date: 20180420
  Transmission Date: 20180711
  Serious: Yes (Hospitalization, Other)
  Sender: FDA-Public Use
  Company Number: US-PFIZER INC-2015393744

PATIENT
  Age: 75 Year
  Sex: Female
  Weight: 58.96 kg

DRUGS (10)
  1. REVATIO [Suspect]
     Active Substance: SILDENAFIL CITRATE
     Indication: PULMONARY HYPERTENSION
     Dosage: 20 MG 3 TABLETS, THREE TIMES A DAY
     Route: 048
  2. FUROSEMIDE. [Concomitant]
     Active Substance: FUROSEMIDE
     Dosage: 80 MG, 2X/DAY
  3. OMEPRAZOLE. [Concomitant]
     Active Substance: OMEPRAZOLE
     Indication: CEREBROVASCULAR ACCIDENT
     Dosage: 20 MG, 2X/DAY
     Dates: start: 201702
  4. TERAZOSIN [Concomitant]
     Active Substance: TERAZOSIN\TERAZOSIN HYDROCHLORIDE
     Dosage: 10 MG, 1X/DAY
  5. POTASSIUM CHLORIDE. [Concomitant]
     Active Substance: POTASSIUM CHLORIDE
     Dosage: 10 MEQ, 2X/DAY
  6. LATANOPROST. [Concomitant]
     Active Substance: LATANOPROST
     Indication: CEREBROVASCULAR ACCIDENT
     Dosage: 2 DROPS (1 DROP EACH EYE) AT BEDTIME
     Route: 047
     Dates: start: 201702
  7. NIFEDIPINE XL [Concomitant]
     Active Substance: NIFEDIPINE
     Indication: CEREBROVASCULAR ACCIDENT
     Dosage: 60 MG, 1X/DAY
     Dates: start: 201702
  8. GLIPIZIDE XL [Concomitant]
     Active Substance: GLIPIZIDE
     Indication: DIABETES MELLITUS
     Dosage: UNK UNK, 1X/DAY
  9. REVATIO [Suspect]
     Active Substance: SILDENAFIL CITRATE
     Indication: PULMONARY ARTERIAL HYPERTENSION
     Dosage: 20MG, 3 TIMES A DAY
     Route: 048
  10. HYDROCODONE [Concomitant]
     Active Substance: HYDROCODONE
     Dosage: 100, 2XDAY AS NEEDED

REACTIONS (5)
  - Myocardial infarction [Recovered/Resolved]
  - Cerebrovascular accident [Not Recovered/Not Resolved]
  - Memory impairment [Recovering/Resolving]
  - Cardiac arrest [Recovered/Resolved]
  - Product use issue [Not Recovered/Not Resolved]

NARRATIVE: CASE EVENT DATE: 20150801
